FAERS Safety Report 19588014 (Version 2)
Quarter: 2021Q3

REPORT INFORMATION
  Report Type: Spontaneous
  Country: GB (occurrence: GB)
  Receive Date: 20210721
  Receipt Date: 20210902
  Transmission Date: 20211014
  Serious: Yes (Hospitalization)
  Sender: FDA-Public Use
  Company Number: GB-MYLANLABS-2021M1043493

PATIENT
  Sex: Male

DRUGS (3)
  1. HYOSCINE HYDROBROMIDE [Concomitant]
     Active Substance: SCOPOLAMINE HYDROBROMIDE
     Indication: SALIVARY HYPERSECRETION
     Dosage: 300 MICROGRAM, PRN
     Route: 048
  2. CLOZARIL [Suspect]
     Active Substance: CLOZAPINE
     Indication: SCHIZOPHRENIA
     Dosage: 125 MILLIGRAM, AM
     Route: 048
     Dates: start: 20200213
  3. CLOZARIL [Suspect]
     Active Substance: CLOZAPINE
     Dosage: 200 MILLIGRAM, PM
     Route: 048
     Dates: start: 20200213

REACTIONS (2)
  - Malaise [Recovered/Resolved]
  - Therapy interrupted [Unknown]

NARRATIVE: CASE EVENT DATE: 20210531
